FAERS Safety Report 6647084-8 (Version None)
Quarter: 2010Q1

REPORT INFORMATION
  Report Type: 
  Country: None (occurrence: None)
  Receive Date: 20100323
  Receipt Date: 20100220
  Transmission Date: 20100710
  Serious: No
  Sender: FDA-Public Use
  Company Number: US-BAYER-201012336BCC

PATIENT
  Age: 78 Year
  Sex: Female

DRUGS (4)
  1. ALEVE (CAPLET) [Suspect]
     Indication: ARTHRALGIA
     Dosage: TOTAL DAILY DOSE: 220 MG  UNIT DOSE: 220 MG
     Route: 048
     Dates: start: 20100216
  2. ZESTORETIC [Concomitant]
     Route: 065
  3. PREMARIN [Concomitant]
     Route: 065
  4. TRAVATAN Z [Concomitant]
     Route: 065

REACTIONS (2)
  - DIZZINESS [None]
  - VISION BLURRED [None]
